FAERS Safety Report 10907479 (Version 1)
Quarter: 2015Q1

REPORT INFORMATION
  Report Type: Spontaneous
  Country: US (occurrence: None)
  Receive Date: 20150309
  Receipt Date: 20150309
  Transmission Date: 20150721
  Serious: Yes (Hospitalization, Disabling)
  Sender: FDA-Public Use
  Company Number: None

PATIENT
  Age: 75 Year
  Sex: Female
  Weight: 61.24 kg

DRUGS (3)
  1. HYDROCORT DIURETIC [Concomitant]
  2. BABY ASPIRIN [Concomitant]
     Active Substance: ASPIRIN
  3. CLINDAMYCIN [Suspect]
     Active Substance: CLINDAMYCIN\CLINDAMYCIN PHOSPHATE
     Indication: TOOTH FRACTURE
     Dosage: 1 CAPSULE 3X DAY
     Route: 048

REACTIONS (7)
  - Hypertension [None]
  - Dizziness [None]
  - Hypoaesthesia [None]
  - Throat irritation [None]
  - Asthenia [None]
  - Chapped lips [None]
  - Oral discomfort [None]

NARRATIVE: CASE EVENT DATE: 20150225
